FAERS Safety Report 5258807-7 (Version None)
Quarter: 2007Q1

REPORT INFORMATION
  Report Type: 
  Country: None (occurrence: None)
  Receive Date: 20070306
  Receipt Date: 20070306
  Transmission Date: 20070707
  Serious: Yes (Other)
  Sender: FDA-Public Use
  Company Number: None

PATIENT
  Age: 58 Year
  Sex: Female
  Weight: 58.9676 kg

DRUGS (5)
  1. BONIVA [Suspect]
     Indication: OSTEOPOROSIS
     Dosage: 1 TABLET MONTHLY PO
     Route: 048
     Dates: start: 20060501, end: 20061101
  2. BONIVA [Suspect]
     Indication: PROPHYLAXIS
     Dosage: 1 TABLET MONTHLY PO
     Route: 048
     Dates: start: 20060501, end: 20061101
  3. BONIVA [Suspect]
     Indication: OSTEOPOROSIS
     Dosage: 1 TABLET MONTHLY PO
     Route: 048
     Dates: start: 20070201, end: 20070303
  4. BONIVA [Suspect]
     Indication: PROPHYLAXIS
     Dosage: 1 TABLET MONTHLY PO
     Route: 048
     Dates: start: 20070201, end: 20070303
  5. MUSCLE RELAXANT [Concomitant]

REACTIONS (5)
  - ASTHENIA [None]
  - BACK PAIN [None]
  - JOINT STIFFNESS [None]
  - MUSCULOSKELETAL PAIN [None]
  - MYALGIA [None]
